FAERS Safety Report 6480998-0 (Version None)
Quarter: 2009Q4

REPORT INFORMATION
  Report Type: 
  Country: None (occurrence: None)
  Receive Date: 20091208
  Receipt Date: 20091208
  Transmission Date: 20100525
  Serious: Yes (Other)
  Sender: FDA-Public Use
  Company Number: US-PFIZER INC-2009281676

PATIENT
  Sex: Female
  Weight: 61.224 kg

DRUGS (4)
  1. LYRICA [Suspect]
     Indication: NEUROPATHY PERIPHERAL
     Dosage: UNK
     Route: 048
     Dates: start: 20051101
  2. TRAZODONE HYDROCHLORIDE [Concomitant]
     Indication: INSOMNIA
     Dosage: 50 MG, 1X/DAY
  3. CYMBALTA [Concomitant]
     Dosage: 90 MG, 1X/DAY
  4. ZANAFLEX [Concomitant]
     Dosage: 2 MG, 2X/DAY

REACTIONS (8)
  - DYSPNOEA [None]
  - FATIGUE [None]
  - LIP SWELLING [None]
  - OEDEMA MOUTH [None]
  - OEDEMA PERIPHERAL [None]
  - PHARYNGEAL OEDEMA [None]
  - PRURITUS [None]
  - THROAT TIGHTNESS [None]
